FAERS Safety Report 7521811-X (Version None)
Quarter: 2011Q2

REPORT INFORMATION
  Report Type: 
  Country: None (occurrence: None)
  Receive Date: 20110603
  Receipt Date: 20110523
  Transmission Date: 20111010
  Serious: Yes (Death, Other)
  Sender: FDA-Public Use
  Company Number: US-BAYER-200941263NA

PATIENT
  Age: 57 Year
  Sex: Male
  Weight: 104.31 kg

DRUGS (23)
  1. COUMADIN [Concomitant]
     Dosage: 5 MG, QD
     Route: 048
     Dates: start: 19980101, end: 20080423
  2. LASIX [Concomitant]
     Dosage: 80 MG, BID
     Route: 048
     Dates: start: 19900101
  3. HUMALOG [Concomitant]
     Route: 058
  4. MILRINONE [Concomitant]
     Dosage: 2 MG, UNK
  5. MUCOMYST [Concomitant]
     Dosage: UNK
     Dates: start: 20080310, end: 20080310
  6. LANTUS [Concomitant]
     Dosage: UNK
     Route: 058
     Dates: start: 20080401
  7. POTASSIUM CHLORIDE [Concomitant]
     Dosage: 40 MEQ, BID
     Route: 048
     Dates: start: 19980101
  8. METOPROLOL TARTRATE [Concomitant]
     Dosage: 25 MG, QD
     Route: 048
  9. NESIRITIDE [Concomitant]
     Dosage: 0.1MG/KG/MIN EVERY 48 HOURS
     Route: 042
     Dates: start: 20080416
  10. LEVOPHED [Concomitant]
  11. SPIRONOLACTONE [Concomitant]
     Dosage: 50 MG, BID
     Route: 048
  12. AMIODARONE HCL [Concomitant]
     Dosage: 400 MG, UNK
     Route: 048
     Dates: start: 20080421
  13. DOBUTAMINE HYDROCHLORIDE [Concomitant]
     Dosage: TITRATED
     Route: 042
  14. TRASYLOL [Suspect]
     Indication: CORONARY ARTERY BYPASS
     Dosage: 200 ML, ONCE, PRIME
     Route: 042
     Dates: start: 20080422, end: 20080422
  15. ZAROXOLYN [Concomitant]
     Dosage: 2.5 MG, QD
     Route: 048
  16. ASPIRIN [Concomitant]
     Dosage: 325 MG, QD
  17. INSULIN [INSULIN] [Concomitant]
     Dosage: 10 UNITS, 20 UNITS, 20 UNITS
  18. SOLU-MEDROL [Concomitant]
     Dosage: 1 G, UNK
  19. LIPITOR [Concomitant]
     Dosage: 20 MG, QD
     Route: 048
  20. TRASYLOL [Suspect]
     Indication: MITRAL VALVE REPLACEMENT
  21. TRASYLOL [Suspect]
     Indication: AORTIC VALVE REPAIR
  22. INSULIN [INSULIN] [Concomitant]
     Dosage: 60 U, BID
     Route: 058
  23. LOVENOX [Concomitant]
     Dosage: 40 MEQ, BID
     Route: 058
     Dates: start: 20080415

REACTIONS (10)
  - DEATH [None]
  - UNEVALUABLE EVENT [None]
  - RENAL INJURY [None]
  - EMOTIONAL DISTRESS [None]
  - RENAL IMPAIRMENT [None]
  - FEAR [None]
  - RENAL FAILURE [None]
  - STRESS [None]
  - PAIN [None]
  - ANXIETY [None]
